FAERS Safety Report 19024713 (Version 1)
Quarter: 2021Q1

REPORT INFORMATION
  Report Type: Spontaneous
  Country: US (occurrence: US)
  Receive Date: 20210318
  Receipt Date: 20210318
  Transmission Date: 20210420
  Serious: No
  Sender: FDA-Public Use
  Company Number: US-AUROBINDO-AUR-APL-2020-008729

PATIENT
  Age: 71 Year
  Sex: Female
  Weight: 81.63 kg

DRUGS (4)
  1. FLUOXETINE CAPSULES USP 20 MG [Suspect]
     Active Substance: FLUOXETINE HYDROCHLORIDE
     Indication: DEPRESSION
     Dosage: ONE CAPSULE PER DAY AT MORNING
     Route: 065
     Dates: start: 20200206, end: 20200210
  2. VITAMIN DAD [Concomitant]
     Indication: GLAUCOMA
     Dosage: AT NIGHT
     Route: 065
  3. FLUOXETINE CAPSULES USP 20 MG [Suspect]
     Active Substance: FLUOXETINE HYDROCHLORIDE
     Indication: OBSESSIVE-COMPULSIVE DISORDER
     Dosage: ONE CAPSULE PER DAY AT MORNING
     Route: 065
     Dates: start: 20200211
  4. LATANOPROST. [Concomitant]
     Active Substance: LATANOPROST
     Indication: GLAUCOMA
     Dosage: AT NIGHT
     Route: 065

REACTIONS (5)
  - Hypertension [Unknown]
  - Product lot number issue [Unknown]
  - Nausea [Recovered/Resolved]
  - Dizziness [Recovered/Resolved]
  - Product dose omission issue [Unknown]

NARRATIVE: CASE EVENT DATE: 20200208
